FAERS Safety Report 15211480 (Version 1)
Quarter: 2018Q3

REPORT INFORMATION
  Report Type: Spontaneous
  Country: US (occurrence: US)
  Receive Date: 20180630
  Receipt Date: 20180630
  Transmission Date: 20181010
  Serious: Yes (Hospitalization)
  Sender: FDA-Public Use
  Company Number: None

PATIENT
  Age: 15 Year
  Sex: Male
  Weight: 61.9 kg

DRUGS (5)
  1. CYTARABINE. [Suspect]
     Active Substance: CYTARABINE
     Dates: end: 20180618
  2. VINCRISTINE SULFATE. [Suspect]
     Active Substance: VINCRISTINE SULFATE
     Dates: end: 20180615
  3. PREDNISONE. [Suspect]
     Active Substance: PREDNISONE
     Dates: end: 20180621
  4. DAUNORUBICIN [Suspect]
     Active Substance: DAUNORUBICIN
     Dates: end: 20180615
  5. ONCASPAR [Suspect]
     Active Substance: PEGASPARGASE
     Dates: end: 20180618

REACTIONS (6)
  - Swelling [None]
  - Odynophagia [None]
  - Septic shock [None]
  - Musculoskeletal stiffness [None]
  - Neck pain [None]
  - Fungaemia [None]

NARRATIVE: CASE EVENT DATE: 20180623
